FAERS Safety Report 10297659 (Version 3)
Quarter: 2014Q3

REPORT INFORMATION
  Report Type: Report from Study
  Country: DK (occurrence: DK)
  Receive Date: 20140711
  Receipt Date: 20140730
  Transmission Date: 20150326
  Serious: Yes (Hospitalization, Other)
  Sender: FDA-Public Use
  Company Number: DK-TEVA-492817ISR

PATIENT
  Age: 38 Year
  Sex: Female

DRUGS (8)
  1. FLUOXETINE [Interacting]
     Active Substance: FLUOXETINE\FLUOXETINE HYDROCHLORIDE
     Indication: PRODUCT USED FOR UNKNOWN INDICATION
     Dosage: 40 MILLIGRAM DAILY; 40 MG, QD
     Route: 065
  2. VALPROATE [Interacting]
     Active Substance: VALPROATE SODIUM
     Indication: AGITATION
     Dosage: 1 GRAM DAILY; 1 G, QD
  3. FLUPHENAZINE DECANOATE. [Suspect]
     Active Substance: FLUPHENAZINE DECANOATE
     Indication: PRODUCT USED FOR UNKNOWN INDICATION
     Dosage: 25 MG, MONTHLY (1/M)
     Route: 030
  4. VALPROATE [Interacting]
     Active Substance: VALPROATE SODIUM
     Indication: NEURONAL CEROID LIPOFUSCINOSIS
     Dosage: 1500 MILLIGRAM DAILY; 1.5 G, QD
     Route: 065
  5. VALPROATE [Interacting]
     Active Substance: VALPROATE SODIUM
     Indication: IRRITABILITY
  6. QUETIAPINE [Suspect]
     Active Substance: QUETIAPINE
     Dosage: 1500 MILLIGRAM DAILY; 1500 MG, QD
     Route: 065
  7. QUETIAPINE [Suspect]
     Active Substance: QUETIAPINE
     Indication: PRODUCT USED FOR UNKNOWN INDICATION
     Dosage: 600 MILLIGRAM DAILY; IN THE EMEA REPORT, DOSE REPORTED AS 1500 MG. 600 MG, QD.
     Route: 048
  8. VALPROATE [Interacting]
     Active Substance: VALPROATE SODIUM
     Indication: AGGRESSION

REACTIONS (3)
  - Aggression [Recovered/Resolved]
  - Hyperammonaemic encephalopathy [Recovered/Resolved]
  - Drug interaction [Recovered/Resolved]
